FAERS Safety Report 16836650 (Version 1)
Quarter: 2019Q3

REPORT INFORMATION
  Report Type: Report from Study
  Country: US (occurrence: US)
  Receive Date: 20190922
  Receipt Date: 20190922
  Transmission Date: 20191005
  Serious: Yes (Other)
  Sender: FDA-Public Use
  Company Number: PHHY2019US214759

PATIENT
  Age: 51 Year
  Sex: Female

DRUGS (1)
  1. GILENYA [Suspect]
     Active Substance: FINGOLIMOD HYDROCHLORIDE
     Indication: MULTIPLE SCLEROSIS
     Dosage: UNK
     Route: 048

REACTIONS (7)
  - White blood cell count decreased [Unknown]
  - Nephrolithiasis [Recovered/Resolved]
  - Lymphocyte count decreased [Unknown]
  - Blood cholesterol increased [Unknown]
  - Alanine aminotransferase increased [Unknown]
  - Low density lipoprotein increased [Unknown]
  - Skin lesion [Unknown]

NARRATIVE: CASE EVENT DATE: 20180926
